FAERS Safety Report 4435771-1 (Version None)
Quarter: 2004Q3

REPORT INFORMATION
  Report Type: 
  Country: None (occurrence: None)
  Receive Date: 20040826
  Receipt Date: 20040810
  Transmission Date: 20050211
  Serious: Yes (Hospitalization)
  Sender: FDA-Public Use
  Company Number: 202783

PATIENT
  Age: 59 Year
  Sex: Female
  Weight: 117.9352 kg

DRUGS (3)
  1. AVONEX [Suspect]
     Indication: MULTIPLE SCLEROSIS
     Dosage: 30 MCG QW IM
     Dates: start: 20040528
  2. PLAVIX [Concomitant]
  3. ASPIRIN [Concomitant]

REACTIONS (2)
  - CHOLECYSTECTOMY [None]
  - INJECTION SITE HAEMORRHAGE [None]
